FAERS Safety Report 9337858 (Version 1)
Quarter: 2013Q2

REPORT INFORMATION
  Report Type: Report from Study
  Country: US (occurrence: US)
  Receive Date: 20130607
  Receipt Date: 20130607
  Transmission Date: 20140414
  Serious: Yes (Hospitalization)
  Sender: FDA-Public Use
  Company Number: US-SANOFI-AVENTIS-2013SA056668

PATIENT
  Age: 54 Year
  Sex: Male
  Weight: 69 kg

DRUGS (10)
  1. CABAZITAXEL [Suspect]
     Indication: GASTRIC CANCER
     Dosage: FREQUENCY: Q3S
     Route: 042
     Dates: start: 20130529
  2. DEXAMETHASONE [Concomitant]
     Route: 048
  3. LOVENOX [Concomitant]
     Route: 058
  4. ERYTHROMYCIN [Concomitant]
     Route: 048
  5. LORAZEPAM [Concomitant]
     Route: 048
  6. REGLAN [Concomitant]
     Route: 048
  7. REMERON [Concomitant]
     Route: 048
  8. ZYPREXA [Concomitant]
  9. ZOFRAN [Concomitant]
     Dosage: 2 TABLETS
  10. PROCHLORPERAZINE [Concomitant]
     Route: 048

REACTIONS (1)
  - Upper gastrointestinal haemorrhage [Unknown]
